FAERS Safety Report 7383392-3 (Version None)
Quarter: 2011Q1

REPORT INFORMATION
  Report Type: 
  Country: None (occurrence: None)
  Receive Date: 20110325
  Receipt Date: 20110325
  Transmission Date: 20110831
  Serious: Yes (Hospitalization)
  Sender: FDA-Public Use
  Company Number: None

PATIENT
  Age: 83 Year
  Sex: Female
  Weight: 80 kg

DRUGS (11)
  1. PRAVACHOL [Concomitant]
  2. CELEXA [Concomitant]
  3. DETROL [Concomitant]
  4. GLIPIZIDE [Concomitant]
  5. LISINOPRIL [Concomitant]
  6. TOPROL-XL [Concomitant]
  7. AMBIEN [Concomitant]
  8. METFORMIN [Concomitant]
  9. NITROGLYCERIN [Concomitant]
  10. PLAVIX [Suspect]
     Indication: CEREBROVASCULAR ACCIDENT
     Dosage: 75MG DAILY PO CHRONIC
     Route: 048
  11. NORVASC [Concomitant]

REACTIONS (3)
  - HAEMATEMESIS [None]
  - URINARY TRACT INFECTION [None]
  - DEHYDRATION [None]
